FAERS Safety Report 7352013-8 (Version None)
Quarter: 2011Q1

REPORT INFORMATION
  Report Type: 
  Country: None (occurrence: None)
  Receive Date: 20110315
  Receipt Date: 20110309
  Transmission Date: 20110831
  Serious: No
  Sender: FDA-Public Use
  Company Number: US-PFIZER INC-2011052568

PATIENT
  Sex: Female
  Weight: 65.76 kg

DRUGS (1)
  1. SUTENT [Suspect]
     Indication: INTRAOCULAR MELANOMA
     Dosage: UNK
     Dates: start: 20101201, end: 20110301

REACTIONS (1)
  - LOCALISED INFECTION [None]
